FAERS Safety Report 13578892 (Version 1)
Quarter: 2017Q2

REPORT INFORMATION
  Report Type: Spontaneous
  Country: SE (occurrence: SE)
  Receive Date: 20170524
  Receipt Date: 20170524
  Transmission Date: 20170830
  Serious: No
  Sender: FDA-Public Use
  Company Number: SE-JAZZ-2017-SE-005548

PATIENT
  Age: 38 Year
  Sex: Female

DRUGS (3)
  1. MALIC ACID [Concomitant]
     Active Substance: MALIC ACID
  2. XYREM [Suspect]
     Active Substance: SODIUM OXYBATE
     Indication: NARCOLEPSY
     Dosage: UNK
     Route: 048
  3. AERIUS                             /01009701/ [Concomitant]
     Active Substance: EBASTINE

REACTIONS (1)
  - Pruritus [Unknown]
